FAERS Safety Report 16697738 (Version 1)
Quarter: 2019Q3

REPORT INFORMATION
  Report Type: Spontaneous
  Country: IR (occurrence: IR)
  Receive Date: 20190813
  Receipt Date: 20190813
  Transmission Date: 20191004
  Serious: Yes (Death)
  Sender: FDA-Public Use
  Company Number: PHHY2019IR187992

PATIENT
  Age: 45 Year
  Sex: Female

DRUGS (1)
  1. AFINITOR [Suspect]
     Active Substance: EVEROLIMUS
     Indication: BREAST CANCER
     Dosage: 10 MG, QD
     Route: 048
     Dates: start: 20171020, end: 20190309

REACTIONS (2)
  - Cachexia [Fatal]
  - Performance status decreased [Fatal]

NARRATIVE: CASE EVENT DATE: 20190309
